FAERS Safety Report 7582903-2 (Version None)
Quarter: 2011Q2

REPORT INFORMATION
  Report Type: 
  Country: None (occurrence: None)
  Receive Date: 20110627
  Receipt Date: 20110627
  Transmission Date: 20111010
  Serious: Yes (Other)
  Sender: FDA-Public Use
  Company Number: None

PATIENT
  Sex: Female
  Weight: 58.9676 kg

DRUGS (2)
  1. GADOLINIUM-BASED CONTRAST AGENTS [Suspect]
     Indication: PROGRESSIVE MULTIPLE SCLEROSIS
     Dosage: 1 TIME IV
     Route: 042
     Dates: start: 20110607, end: 20110607
  2. GADOLINIUM-BASED CONTRAST AGENTS [Suspect]
     Indication: NUCLEAR MAGNETIC RESONANCE IMAGING
     Dosage: 1 TIME IV
     Route: 042
     Dates: start: 20110607, end: 20110607

REACTIONS (5)
  - JOINT STIFFNESS [None]
  - BONE PAIN [None]
  - FALL [None]
  - PROGRESSIVE MULTIPLE SCLEROSIS [None]
  - MOVEMENT DISORDER [None]
